FAERS Safety Report 5494670-7 (Version None)
Quarter: 2007Q4

REPORT INFORMATION
  Report Type: 
  Country: None (occurrence: None)
  Receive Date: 20071023
  Receipt Date: 20071023
  Transmission Date: 20080405
  Serious: No
  Sender: FDA-Public Use
  Company Number: None

PATIENT
  Age: 46 Year
  Sex: Male
  Weight: 68.9467 kg

DRUGS (2)
  1. AVEENO ANTI-ITCH CREAM CALAMINE 3% JOHNSON + JOHNSON [Suspect]
     Indication: HEAT RASH
     Dosage: APPLIED LOCALLY ONCE CUTANEOUS
     Route: 003
     Dates: start: 20071017, end: 20071017
  2. BAND-AID CALAMINE SPRAY CALAMINE 14.5% JOHNSON + JOHNSON [Suspect]
     Indication: URTICARIA
     Dosage: SPRAYED ON ONCE CUTANEOUS
     Route: 003
     Dates: start: 20071019, end: 20071019

REACTIONS (5)
  - CONDITION AGGRAVATED [None]
  - RASH ERYTHEMATOUS [None]
  - RASH PAPULAR [None]
  - RASH PRURITIC [None]
  - URTICARIA [None]
